FAERS Safety Report 16695439 (Version 2)
Quarter: 2019Q3

REPORT INFORMATION
  Report Type: Report from Study
  Country: AU (occurrence: AU)
  Receive Date: 20190813
  Receipt Date: 20190828
  Transmission Date: 20191004
  Serious: Yes (Other)
  Sender: FDA-Public Use
  Company Number: AU-BEH-2019105410

PATIENT
  Age: 56 Year
  Sex: Female
  Weight: 69.6 kg

DRUGS (11)
  1. SYMBICORT [Concomitant]
     Active Substance: BUDESONIDE\FORMOTEROL FUMARATE DIHYDRATE
     Dosage: 1 PUFF, BID
     Route: 065
  2. HIZENTRA [Suspect]
     Active Substance: HUMAN IMMUNOGLOBULIN G
     Dosage: 10 MILLIGRAM, QW
     Route: 058
     Dates: start: 20190702
  3. HIZENTRA [Suspect]
     Active Substance: HUMAN IMMUNOGLOBULIN G
     Dosage: 10 MILLIGRAM, QW
     Route: 058
     Dates: start: 20190622
  4. AMLODIPINE [Concomitant]
     Active Substance: AMLODIPINE BESYLATE
     Dosage: 5 MILLIGRAM, QD
     Route: 065
  5. HIZENTRA [Suspect]
     Active Substance: HUMAN IMMUNOGLOBULIN G
     Dosage: 10 MILLIGRAM, QW
     Route: 058
     Dates: start: 20190713
  6. RULIDE [Concomitant]
     Active Substance: ROXITHROMYCIN
     Dosage: 300 MILLIGRAM
     Route: 065
  7. CLARATYNE [Concomitant]
     Active Substance: LORATADINE
     Dosage: 2 X 10 MILLIGRAM, TOT
     Route: 065
  8. CRESTOR [Concomitant]
     Active Substance: ROSUVASTATIN CALCIUM
     Dosage: 5 MILLIGRAM, QD
     Route: 065
  9. HIZENTRA [Suspect]
     Active Substance: HUMAN IMMUNOGLOBULIN G
     Dosage: 10 MILLIGRAM, QW
     Route: 058
     Dates: start: 20190802
  10. LEXAPRO [Concomitant]
     Active Substance: ESCITALOPRAM OXALATE
     Dosage: 20 MILLIGRAM, QD
     Route: 065
  11. NEXIUM [Concomitant]
     Active Substance: ESOMEPRAZOLE MAGNESIUM
     Dosage: 20 MILLIGRAM, QD
     Route: 065

REACTIONS (12)
  - Cough [Unknown]
  - Night sweats [Unknown]
  - Dyspnoea [Recovered/Resolved]
  - Pharyngeal swelling [Recovered/Resolved]
  - Pharyngeal swelling [Recovered/Resolved]
  - Pharyngeal swelling [Recovered/Resolved]
  - Headache [Recovered/Resolved]
  - Chest discomfort [Unknown]
  - Pharyngeal swelling [Recovered/Resolved]
  - Throat tightness [Recovered/Resolved]
  - Influenza [Unknown]
  - Vision blurred [Recovered/Resolved]

NARRATIVE: CASE EVENT DATE: 20190622
